FAERS Safety Report 5354945-9 (Version None)
Quarter: 2007Q2

REPORT INFORMATION
  Report Type: 
  Country: None (occurrence: None)
  Receive Date: 20070521
  Receipt Date: 20070326
  Transmission Date: 20071010
  Serious: No
  Sender: FDA-Public Use
  Company Number: WAES 0703USA04739

PATIENT
  Age: 63 Year
  Sex: Male

DRUGS (5)
  1. JANUVIA [Suspect]
     Indication: DIABETES MELLITUS
     Dosage: 100 MG/DAILY/PO
     Route: 048
     Dates: start: 20070322
  2. DYNACIRC [Concomitant]
  3. GLUCOVANCE [Concomitant]
  4. PRAVACHOL [Concomitant]
  5. SAW PALMETTO [Concomitant]

REACTIONS (1)
  - HAEMATOCHEZIA [None]
